FAERS Safety Report 26208821 (Version 1)
Quarter: 2025Q4

REPORT INFORMATION
  Report Type: Spontaneous
  Country: US (occurrence: None)
  Receive Date: 20251229
  Receipt Date: 20251229
  Transmission Date: 20260118
  Serious: Yes (Other)
  Sender: FDA-CTU
  Company Number: None

PATIENT
  Age: 4 Day
  Sex: Female
  Weight: 3.3 kg

DRUGS (1)
  1. BEYFORTUS [Suspect]
     Active Substance: NIRSEVIMAB-ALIP

REACTIONS (3)
  - Incorrect dose administered [None]
  - Dose calculation error [None]
  - Diarrhoea [None]

NARRATIVE: CASE EVENT DATE: 20251222
